FAERS Safety Report 8506459 (Version 2)
Quarter: 2013Q1

REPORT INFORMATION
  Report Type: Spontaneous
  Country: US (occurrence: US)
  Receive Date: 20120412
  Receipt Date: 20130227
  Transmission Date: 20140127
  Serious: Yes (Other)
  Sender: FDA-Public Use
  Company Number: US-ROCHE-1056652

PATIENT
  Sex: Female

DRUGS (6)
  1. BONIVA [Suspect]
     Indication: OSTEOPOROSIS
     Route: 065
     Dates: start: 200312, end: 200911
  2. BONIVA [Suspect]
     Indication: OSTEOPENIA
  3. FOSAMAX [Suspect]
     Indication: OSTEOPOROSIS
     Route: 065
     Dates: start: 200312, end: 200911
  4. FOSAMAX [Suspect]
     Indication: OSTEOPENIA
  5. ALENDRONATE [Suspect]
     Indication: OSTEOPOROSIS
     Route: 065
     Dates: start: 200312, end: 200911
  6. ALENDRONATE [Suspect]
     Indication: OSTEOPENIA

REACTIONS (3)
  - Femur fracture [Unknown]
  - Low turnover osteopathy [Unknown]
  - Anxiety [Unknown]
